FAERS Safety Report 25942393 (Version 1)
Quarter: 2025Q4

REPORT INFORMATION
  Report Type: Report from Study
  Country: US (occurrence: US)
  Receive Date: 20251021
  Receipt Date: 20251021
  Transmission Date: 20260117
  Serious: Yes (Other)
  Sender: ALEXION PHARMACEUTICALS
  Company Number: US-AstraZeneca-CH-00972326A

PATIENT
  Sex: Female
  Weight: 61.69 kg

DRUGS (1)
  1. CAPIVASERTIB [Suspect]
     Active Substance: CAPIVASERTIB
     Indication: Metastases to breast
     Dosage: 200 MILLIGRAM, BID

REACTIONS (1)
  - Diabetes mellitus [Not Recovered/Not Resolved]
